FAERS Safety Report 7767516-1 (Version None)
Quarter: 2011Q3

REPORT INFORMATION
  Report Type: 
  Country: None (occurrence: None)
  Receive Date: 20110922
  Receipt Date: 20110915
  Transmission Date: 20111222
  Serious: Yes (Death, Hospitalization)
  Sender: FDA-Public Use
  Company Number: JP-JNJFOC-20091002443

PATIENT
  Age: 69 Year
  Sex: Female
  Weight: 61 kg

DRUGS (9)
  1. BIOFERMIN [Concomitant]
     Indication: PROPHYLAXIS
     Route: 048
     Dates: start: 20090725, end: 20090728
  2. LEVOFLOXACIN [Concomitant]
     Indication: CYSTITIS
     Route: 048
     Dates: start: 20090727, end: 20090801
  3. CONIEL [Concomitant]
     Indication: HYPERTENSION
     Route: 048
  4. PRIMPERAN TAB [Concomitant]
     Indication: PROPHYLAXIS
     Route: 048
     Dates: start: 20090817
  5. DOXORUBICIN HCL [Suspect]
     Indication: OVARIAN CANCER RECURRENT
     Route: 042
     Dates: start: 20090722, end: 20090722
  6. AZUNOL [Concomitant]
     Indication: PROPHYLAXIS
     Route: 049
     Dates: start: 20090722
  7. CARBENIN [Concomitant]
     Route: 042
     Dates: start: 20090803, end: 20090810
  8. NEU-UP [Concomitant]
     Indication: NEUTROPENIA
     Route: 058
     Dates: start: 20090803, end: 20090810
  9. FOY [Concomitant]
     Indication: DISSEMINATED INTRAVASCULAR COAGULATION
     Route: 042
     Dates: start: 20090802, end: 20090805

REACTIONS (5)
  - SEPSIS [None]
  - BONE MARROW FAILURE [None]
  - DISSEMINATED INTRAVASCULAR COAGULATION [None]
  - OVARIAN CANCER RECURRENT [None]
  - HEPATIC FUNCTION ABNORMAL [None]
